FAERS Safety Report 8642389 (Version 3)
Quarter: 2013Q4

REPORT INFORMATION
  Report Type: Spontaneous
  Country: US (occurrence: US)
  Receive Date: 20120628
  Receipt Date: 20131105
  Transmission Date: 20140711
  Serious: Yes (Other)
  Sender: FDA-Public Use
  Company Number: US-009507513-1206USA04374

PATIENT
  Age: 33 Year
  Sex: Female

DRUGS (2)
  1. PRINIVIL [Suspect]
     Route: 048
  2. SEPAMIT [Concomitant]

REACTIONS (2)
  - Ischaemic stroke [Unknown]
  - Posterior reversible encephalopathy syndrome [Unknown]
